FAERS Safety Report 15206378 (Version 1)
Quarter: 2018Q4

REPORT INFORMATION
  Report Type: Report from Study
  Country: ES (occurrence: ES)
  Receive Date: 20180727
  Receipt Date: 20180727
  Transmission Date: 20190204
  Serious: Yes (Other)
  Sender: FDA-Public Use
  Company Number: ES-TEVA-2018-ES-931045

PATIENT
  Age: 68 Year
  Sex: Male

DRUGS (3)
  1. LEVETIRACETAM (1167A) [Suspect]
     Active Substance: LEVETIRACETAM
     Indication: SUBDURAL HAEMATOMA
     Dosage: 1000MG 12 POWER
     Route: 042
     Dates: start: 20170416, end: 20170521
  2. FUROSEMIDA (1615A) [Concomitant]
     Active Substance: FUROSEMIDE
     Dosage: PAUTA VARIABLE DURANTE TODO EL INGRESO
     Route: 042
     Dates: start: 20170424, end: 20170810
  3. ENOXAPARINA (2482A) [Suspect]
     Active Substance: ENOXAPARIN
     Dosage: 80 MILLIGRAM DAILY; 80MG CADA 12 HORAS HASTA EL 21/05/2017. DESDE ENTONCES PAUTADO COMO IRREGULAR
     Route: 058
     Dates: start: 20170424, end: 20170521

REACTIONS (1)
  - Eosinophilia [Recovered/Resolved]

NARRATIVE: CASE EVENT DATE: 20170427
